FAERS Safety Report 9173207 (Version 1)
Quarter: 2013Q1

REPORT INFORMATION
  Report Type: Spontaneous
  Country: FR (occurrence: FR)
  Receive Date: 20130320
  Receipt Date: 20130320
  Transmission Date: 20140127
  Serious: Yes (Other)
  Sender: FDA-Public Use
  Company Number: FR-JNJFOC-20130306611

PATIENT
  Age: 25 Year
  Sex: Male

DRUGS (3)
  1. REMICADE [Suspect]
     Indication: PRODUCT USED FOR UNKNOWN INDICATION
     Dosage: 4TH INFUSION
     Route: 042
  2. REMICADE [Suspect]
     Indication: PRODUCT USED FOR UNKNOWN INDICATION
     Dosage: 5TH INFUSION
     Route: 042
     Dates: start: 20130305
  3. HYDROCORTISONE [Concomitant]
     Indication: PREMEDICATION
     Route: 042
     Dates: start: 20130305

REACTIONS (5)
  - Respiratory disorder [Unknown]
  - Vomiting [Unknown]
  - Cough [Unknown]
  - Infusion related reaction [Unknown]
  - Swelling [Unknown]
